FAERS Safety Report 6756292-7 (Version None)
Quarter: 2010Q2

REPORT INFORMATION
  Report Type: 
  Country: None (occurrence: None)
  Receive Date: 20100604
  Receipt Date: 20100531
  Transmission Date: 20101027
  Serious: Yes (Death, Hospitalization, Disabling, Other)
  Sender: FDA-Public Use
  Company Number: DE-ROCHE-686665

PATIENT
  Sex: Female
  Weight: 60 kg

DRUGS (6)
  1. TOCILIZUMAB [Suspect]
     Route: 042
     Dates: start: 20100201, end: 20100201
  2. PREDNISOLONE [Suspect]
     Route: 048
     Dates: end: 20100212
  3. PREDNISOLONE [Suspect]
     Route: 048
     Dates: start: 20100213, end: 20100215
  4. DICLOFENAC [Concomitant]
     Route: 048
     Dates: start: 20100213, end: 20100215
  5. TRAMADOL HCL [Concomitant]
     Indication: PAIN
     Route: 048
     Dates: start: 20100213, end: 20100215
  6. NOVAMINSULFON [Concomitant]
     Dates: start: 20100213, end: 20100215

REACTIONS (4)
  - BURSITIS INFECTIVE [None]
  - SOFT TISSUE INFECTION [None]
  - SUDDEN CARDIAC DEATH [None]
  - THROMBOCYTOPENIA [None]
